FAERS Safety Report 8088424-5 (Version None)
Quarter: 2012Q1

REPORT INFORMATION
  Report Type: 
  Country: None (occurrence: None)
  Receive Date: 20120128
  Receipt Date: 20110531
  Transmission Date: 20120608
  Serious: Yes (Other)
  Sender: FDA-Public Use
  Company Number: US-ABBOTT-11P-163-0729648-00

PATIENT
  Sex: Female

DRUGS (17)
  1. NEXIUM [Concomitant]
     Indication: GASTROOESOPHAGEAL REFLUX DISEASE
     Dosage: DAILY DOSE: 40MG
  2. LEVOTHYROXINE SODIUM [Concomitant]
     Indication: HYPOTHYROIDISM
     Dosage: DAILY DOSE: 0.88MG
  3. SKELAXIN [Concomitant]
     Indication: MUSCLE SPASMS
     Dosage: 1/2 - 1 TABLET DAILY
  4. IRON SUPPLEMENT [Concomitant]
     Indication: PRODUCT USED FOR UNKNOWN INDICATION
  5. METHADONE HCL [Concomitant]
     Indication: FIBROMYALGIA
  6. DILTIAZEM HCL [Concomitant]
     Indication: PALPITATIONS
     Dosage: DAILY DOSE: 240MG
  7. PREDNISONE TAB [Concomitant]
     Indication: PRODUCT USED FOR UNKNOWN INDICATION
     Dosage: DAILY DOSE: 5MG
  8. SPIRONOLACTONE [Concomitant]
     Indication: JOINT SWELLING
  9. KEPPRA [Concomitant]
     Indication: CONVULSION
  10. SINGULAIR [Concomitant]
     Indication: HYPERSENSITIVITY
     Dosage: DAILY DOSE: 10MG
  11. REMERON [Concomitant]
     Indication: DEPRESSION
     Dosage: DAILY DOSE: 15MG
  12. CYMBALTA [Concomitant]
     Indication: DEPRESSION
  13. HUMIRA [Suspect]
     Indication: CROHN'S DISEASE
     Dates: start: 20100101
  14. VITAMIN D [Concomitant]
     Indication: PRODUCT USED FOR UNKNOWN INDICATION
     Dosage: MONTHLY DOSE: 50000 UNITS
  15. NASONEX [Concomitant]
     Indication: HYPERSENSITIVITY
     Dosage: 1 PUFF EACH NOSTRIL DAILY
  16. RESTASIS TEARS [Concomitant]
     Indication: DRY EYE
     Dosage: 1 DROP EACH EYE TWICE DAILY
  17. LUNESTA [Concomitant]
     Indication: INSOMNIA
     Dosage: AT BEDTIME

REACTIONS (2)
  - SHOULDER ARTHROPLASTY [None]
  - INJECTION SITE ERYTHEMA [None]
